FAERS Safety Report 14948105 (Version 1)
Quarter: 2018Q2

REPORT INFORMATION
  Report Type: Spontaneous
  Country: ES (occurrence: ES)
  Receive Date: 20180529
  Receipt Date: 20180529
  Transmission Date: 20180711
  Serious: Yes (Other)
  Sender: FDA-Public Use
  Company Number: ES-SA-2018SA139436

PATIENT
  Sex: Male

DRUGS (2)
  1. DACORTIN [Suspect]
     Active Substance: PREDNISONE
     Indication: LUNG NEOPLASM
     Dosage: UNK
     Route: 048
  2. LANTUS SOLOSTAR [Suspect]
     Active Substance: INSULIN GLARGINE
     Indication: DIABETES MELLITUS
     Dosage: 18 IU, QD
     Route: 058

REACTIONS (3)
  - Anxiety [Not Recovered/Not Resolved]
  - Hyperglycaemia [Not Recovered/Not Resolved]
  - Lung neoplasm [Not Recovered/Not Resolved]

NARRATIVE: CASE EVENT DATE: 20180521
